FAERS Safety Report 21097212 (Version 3)
Quarter: 2022Q3

REPORT INFORMATION
  Report Type: Report from Study
  Country: US (occurrence: US)
  Receive Date: 20220719
  Receipt Date: 20220721
  Transmission Date: 20221026
  Serious: Yes (Life-Threatening, Disabling, Other)
  Sender: FDA-Public Use
  Company Number: US-NOVARTISTESTPH-NVSC2022US162486

PATIENT
  Age: 60 Year
  Sex: Female
  Weight: 126.55 kg

DRUGS (5)
  1. ENTRESTO [Suspect]
     Active Substance: SACUBITRIL\VALSARTAN
     Indication: Cardiac failure congestive
     Dosage: 1 DOSAGE FORM, BID
     Route: 048
     Dates: start: 201911
  2. METOPROLOL [Suspect]
     Active Substance: METOPROLOL
     Indication: Heart rate increased
     Dosage: 25 MG, BID
     Route: 048
     Dates: start: 201911
  3. OMEPRAZOLE [Suspect]
     Active Substance: OMEPRAZOLE
     Indication: Gastrooesophageal reflux disease
     Dosage: 40 MG, QD
     Route: 048
     Dates: start: 2012
  4. ELIQUIS [Suspect]
     Active Substance: APIXABAN
     Indication: Anticoagulant therapy
     Dosage: 5 MG, BID ( PRESCRIBED APPROX. 5 YEARS AGO)
     Route: 048
  5. RANEXA [Suspect]
     Active Substance: RANOLAZINE
     Indication: Chest pain
     Dosage: 2000 MG, BID
     Route: 048
     Dates: start: 2012

REACTIONS (6)
  - Hypertension [Not Recovered/Not Resolved]
  - Product use issue [Not Recovered/Not Resolved]
  - Headache [Not Recovered/Not Resolved]
  - Fatigue [Not Recovered/Not Resolved]
  - Cough [Recovered/Resolved]
  - Feeling abnormal [Unknown]

NARRATIVE: CASE EVENT DATE: 20220715
